FAERS Safety Report 4301374-2 (Version None)
Quarter: 2004Q1

REPORT INFORMATION
  Report Type: 
  Country: None (occurrence: None)
  Receive Date: 20040223
  Receipt Date: 20030826
  Transmission Date: 20041129
  Serious: No
  Sender: FDA-Public Use
  Company Number: US-GLAXOSMITHKLINE-A0423627A

PATIENT
  Sex: Male

DRUGS (1)
  1. NAVELBINE [Suspect]
     Route: 042

REACTIONS (2)
  - CHILLS [None]
  - PAIN IN JAW [None]
